FAERS Safety Report 6310924-6 (Version None)
Quarter: 2009Q3

REPORT INFORMATION
  Report Type: 
  Country: None (occurrence: None)
  Receive Date: 20090812
  Receipt Date: 20090731
  Transmission Date: 20100115
  Serious: Yes (Hospitalization)
  Sender: FDA-Public Use
  Company Number: IDA-00240

PATIENT
  Age: 1 Year
  Sex: Male

DRUGS (1)
  1. INDERAL [Suspect]
     Dosage: 30 MG DAILY ORAL FORMULATION: TABLET
     Route: 048
     Dates: end: 20090701

REACTIONS (8)
  - CONSCIOUSNESS FLUCTUATING [None]
  - DYSSTASIA [None]
  - HYPERHIDROSIS [None]
  - HYPOGLYCAEMIA [None]
  - MUSCLE TWITCHING [None]
  - NASOPHARYNGITIS [None]
  - STATUS EPILEPTICUS [None]
  - UNRESPONSIVE TO STIMULI [None]
